FAERS Safety Report 5305771-8 (Version None)
Quarter: 2007Q2

REPORT INFORMATION
  Report Type: 
  Country: None (occurrence: None)
  Receive Date: 20070424
  Receipt Date: 20070411
  Transmission Date: 20071010
  Serious: Yes (Other)
  Sender: FDA-Public Use
  Company Number: NO-ELI_LILLY_AND_COMPANY-NO200704003155

PATIENT
  Age: 48 Year
  Sex: Male

DRUGS (16)
  1. ZYPREXA [Suspect]
     Dosage: 20 MG, DAILY (1/D)
  2. ZYPREXA [Suspect]
     Dosage: 10 MG, DAILY (1/D)
     Route: 030
  3. CISORDINOL DEPOT [Concomitant]
     Dosage: 0.5 ML, FORTNIGHTLY
  4. BIPERIDEN HYDROCHLORIDE [Concomitant]
     Dosage: 1 ML, FORTNIGHTLY
  5. HALDOL [Concomitant]
     Indication: SCHIZOAFFECTIVE DISORDER
     Dosage: 1 MG, UNK
     Dates: start: 19900501, end: 19990101
  6. RISPERDAL CONSTA [Concomitant]
     Indication: SCHIZOAFFECTIVE DISORDER
     Dosage: 25 MG, FORTNIGHTLY
     Route: 030
     Dates: start: 20030801
  7. RISPERDAL CONSTA [Concomitant]
     Dosage: 50 MG, FORTNIGHTLY
     Route: 030
  8. RISPERDAL CONSTA [Concomitant]
     Dosage: 37.5 MG,FORTNIGHTLY
     Route: 030
  9. ZELDOX [Concomitant]
     Dosage: 60 MG, DAILY (1/D)
  10. ZELDOX [Concomitant]
     Dosage: 40 MG, DAILY (1/D)
  11. MEDROL [Concomitant]
  12. ORFIRIL /00228502/ [Concomitant]
     Dosage: 900 MG, UNK
  13. ORFIRIL /00228502/ [Concomitant]
     Dosage: 300 MG, OTHER
  14. ZOLOFT [Concomitant]
     Dosage: 50 MG, DAILY (1/D)
  15. TRILAFON [Concomitant]
     Dosage: 0.5 G,FORTNIGHTLY
  16. LARGACTIL [Concomitant]
     Dosage: 50 MG, UNK

REACTIONS (13)
  - AMNESIA [None]
  - BRAIN NEOPLASM MALIGNANT [None]
  - CHILLS [None]
  - DENTAL EXAMINATION ABNORMAL [None]
  - HEPATOCELLULAR DAMAGE [None]
  - HYPERTENSION [None]
  - HYPERTRICHOSIS [None]
  - MUSCLE SPASMS [None]
  - MUSCULAR WEAKNESS [None]
  - SUFFOCATION FEELING [None]
  - TREMOR [None]
  - URINARY INCONTINENCE [None]
  - WEIGHT INCREASED [None]
